FAERS Safety Report 9688341 (Version 1)
Quarter: 2013Q4

REPORT INFORMATION
  Report Type: Report from Study
  Country: BR (occurrence: BR)
  Receive Date: 20131114
  Receipt Date: 20131114
  Transmission Date: 20140711
  Serious: Yes (Other)
  Sender: FDA-Public Use
  Company Number: PHHY2013BR130020

PATIENT
  Age: 54 Year
  Sex: Female

DRUGS (1)
  1. DIOVAN AMLO FIX [Suspect]
     Indication: BLOOD PRESSURE INCREASED
     Dosage: 1 DF(160/5MG), QD(A DAY, IN THE MORNING)
     Route: 048
     Dates: start: 2007

REACTIONS (2)
  - Thyroid cancer [Recovered/Resolved]
  - Parathyroid tumour [Recovered/Resolved]
